FAERS Safety Report 7728621-9 (Version None)
Quarter: 2011Q3

REPORT INFORMATION
  Report Type: 
  Country: None (occurrence: None)
  Receive Date: 20110906
  Receipt Date: 20110831
  Transmission Date: 20111222
  Serious: Yes (Other)
  Sender: FDA-Public Use
  Company Number: US-RB-027901-11

PATIENT
  Age: 90 Year
  Sex: Male

DRUGS (2)
  1. MUCINEX [Suspect]
     Route: 048
  2. INSULIN [Concomitant]

REACTIONS (1)
  - BLOOD GLUCOSE DECREASED [None]
